FAERS Safety Report 21459448 (Version 1)
Quarter: 2022Q4

REPORT INFORMATION
  Report Type: Spontaneous
  Country: US (occurrence: None)
  Receive Date: 20221014
  Receipt Date: 20221014
  Transmission Date: 20230113
  Serious: Yes (Other)
  Sender: FDA-Public Use
  Company Number: None

PATIENT
  Sex: Female

DRUGS (11)
  1. LENVIMA [Suspect]
     Active Substance: LENVATINIB
     Indication: Renal cancer
     Dosage: FREQUENCY : DAILY;?
     Route: 048
     Dates: start: 20190101
  2. EVEROLIMUS [Concomitant]
     Active Substance: EVEROLIMUS
  3. HYDROCORTISONE [Concomitant]
     Active Substance: HYDROCORTISONE
  4. LEVOTHYROXINE [Concomitant]
     Active Substance: LEVOTHYROXINE
  5. METOPROLOL [Concomitant]
     Active Substance: METOPROLOL
  6. HYDRALAZINE [Concomitant]
     Active Substance: HYDRALAZINE HYDROCHLORIDE
  7. FUROSEMIDE [Concomitant]
     Active Substance: FUROSEMIDE
  8. NIFEDIPINE [Concomitant]
     Active Substance: NIFEDIPINE
  9. OMEPRAZOLE [Concomitant]
     Active Substance: OMEPRAZOLE
  10. MIRTAZAPINE [Concomitant]
     Active Substance: MIRTAZAPINE
  11. TEMAZEPAM [Concomitant]
     Active Substance: TEMAZEPAM

REACTIONS (2)
  - Onychalgia [None]
  - Onychomadesis [None]
